FAERS Safety Report 20165587 (Version 1)
Quarter: 2021Q4

REPORT INFORMATION
  Report Type: Spontaneous
  Country: EG (occurrence: EG)
  Receive Date: 20211209
  Receipt Date: 20211209
  Transmission Date: 20220303
  Serious: Yes (Other)
  Sender: FDA-Public Use
  Company Number: EG-NOVARTISPH-NVSC2021EG277905

PATIENT
  Sex: Female

DRUGS (14)
  1. HYDROCHLOROTHIAZIDE\VALSARTAN [Suspect]
     Active Substance: HYDROCHLOROTHIAZIDE\VALSARTAN
     Indication: Hypertension
     Dosage: UNK MG (80\12.5MG)
     Route: 048
     Dates: start: 2011, end: 201912
  2. HYDROCHLOROTHIAZIDE\VALSARTAN [Suspect]
     Active Substance: HYDROCHLOROTHIAZIDE\VALSARTAN
     Dosage: UNK MG (160\12.5MG)
     Route: 048
     Dates: start: 201912
  3. RAMIPRIL [Concomitant]
     Active Substance: RAMIPRIL
     Indication: Hypertension
     Dosage: 1.25 MG, QD
     Route: 048
     Dates: start: 2010, end: 2011
  4. PRADAXA [Concomitant]
     Active Substance: DABIGATRAN ETEXILATE MESYLATE
     Indication: Anticoagulant therapy
     Dosage: 110 MG, QD
     Route: 048
     Dates: start: 2015, end: 2016
  5. WARFARIN SODIUM [Concomitant]
     Active Substance: WARFARIN SODIUM
     Indication: Anticoagulant therapy
     Dosage: 10 MG, QD
     Route: 048
     Dates: start: 201701, end: 201707
  6. WARFARIN SODIUM [Concomitant]
     Active Substance: WARFARIN SODIUM
     Dosage: 2 MG, QD
     Route: 048
     Dates: start: 201707, end: 201802
  7. WARFARIN SODIUM [Concomitant]
     Active Substance: WARFARIN SODIUM
     Dosage: 3 MG, QD (ONE TABLET EVERY OTHER DAY (FROM AUG 2018 TILL NOV 2018))
     Route: 048
     Dates: start: 201802, end: 201811
  8. WARFARIN SODIUM [Concomitant]
     Active Substance: WARFARIN SODIUM
     Dosage: 3 MG, QD
     Route: 048
     Dates: start: 201902, end: 20211101
  9. WARFARIN SODIUM [Concomitant]
     Active Substance: WARFARIN SODIUM
     Dosage: 4 MG, QD
     Route: 048
     Dates: start: 201808, end: 201902
  10. XARELTO [Concomitant]
     Active Substance: RIVAROXABAN
     Indication: Anticoagulant therapy
     Dosage: 10 MG, QD
     Route: 048
     Dates: start: 20211101
  11. ANTODINE [Concomitant]
     Indication: Gastrointestinal disorder
     Dosage: 40 MG, QD
     Route: 048
     Dates: start: 2011, end: 2016
  12. NEXIUM [Concomitant]
     Active Substance: ESOMEPRAZOLE MAGNESIUM
     Indication: Gastrointestinal disorder
     Dosage: 40 MG, QD
     Route: 048
     Dates: start: 2016, end: 2019
  13. CONTROLOC [Concomitant]
     Active Substance: PANTOPRAZOLE SODIUM
     Indication: Gastrointestinal disorder
     Dosage: 40 MG, QD
     Route: 048
     Dates: start: 2019
  14. LYRICA [Concomitant]
     Active Substance: PREGABALIN
     Indication: Muscle relaxant therapy
     Dosage: UNK
     Route: 065
     Dates: start: 2011, end: 2013

REACTIONS (7)
  - Pulmonary oedema [Not Recovered/Not Resolved]
  - Dyspnoea [Recovered/Resolved]
  - Cardiac failure [Recovering/Resolving]
  - Ejection fraction decreased [Recovering/Resolving]
  - Productive cough [Recovered/Resolved]
  - Movement disorder [Not Recovered/Not Resolved]
  - Incontinence [Not Recovered/Not Resolved]

NARRATIVE: CASE EVENT DATE: 20110101
